FAERS Safety Report 16116103 (Version 2)
Quarter: 2020Q1

REPORT INFORMATION
  Report Type: Spontaneous
  Country: US (occurrence: US)
  Receive Date: 20190326
  Receipt Date: 20200113
  Transmission Date: 20200409
  Serious: No
  Sender: FDA-Public Use
  Company Number: US-SA-2019SA081018

PATIENT
  Age: 87 Year
  Sex: Male

DRUGS (1)
  1. PRALUENT [Suspect]
     Active Substance: ALIROCUMAB
     Indication: HYPERLIPIDAEMIA
     Dosage: 75 MG
     Route: 058
     Dates: start: 201901, end: 2019

REACTIONS (8)
  - Bronchitis [Not Recovered/Not Resolved]
  - Rash pruritic [Not Recovered/Not Resolved]
  - Wheezing [Not Recovered/Not Resolved]
  - Cough [Not Recovered/Not Resolved]
  - Influenza like illness [Unknown]
  - Chest discomfort [Not Recovered/Not Resolved]
  - Respiratory tract congestion [Unknown]
  - Cough [Unknown]

NARRATIVE: CASE EVENT DATE: 2019
